FAERS Safety Report 7210604-9 (Version None)
Quarter: 2010Q4

REPORT INFORMATION
  Report Type: 
  Country: None (occurrence: None)
  Receive Date: 20101223
  Receipt Date: 20101207
  Transmission Date: 20110411
  Serious: No
  Sender: FDA-Public Use
  Company Number: 023701

PATIENT

DRUGS (3)
  1. VIMPAT [Suspect]
     Dosage: 200 MG BID
  2. LEVETIRACETAM [Concomitant]
  3. ORFIRIL [Concomitant]

REACTIONS (1)
  - SYNCOPE [None]
